FAERS Safety Report 16751594 (Version 1)
Quarter: 2019Q3

REPORT INFORMATION
  Report Type: Spontaneous
  Country: US (occurrence: US)
  Receive Date: 20190828
  Receipt Date: 20190828
  Transmission Date: 20191005
  Serious: No
  Sender: FDA-Public Use
  Company Number: US-ENDO PHARMACEUTICALS INC-2018-040624

PATIENT
  Sex: Female

DRUGS (3)
  1. PREDNISONE. [Suspect]
     Active Substance: PREDNISONE
     Indication: BACK PAIN
  2. PREDNISONE. [Suspect]
     Active Substance: PREDNISONE
     Indication: MUSCLE SPASMS
  3. PREDNISONE. [Suspect]
     Active Substance: PREDNISONE
     Indication: NECK PAIN
     Dosage: UNK
     Dates: start: 201509

REACTIONS (3)
  - Feeling abnormal [Unknown]
  - Hallucination [Unknown]
  - Heart rate decreased [Not Recovered/Not Resolved]
